FAERS Safety Report 10039797 (Version 1)
Quarter: 2014Q1

REPORT INFORMATION
  Report Type: Spontaneous
  Country: US (occurrence: US)
  Receive Date: 20140326
  Receipt Date: 20140326
  Transmission Date: 20141002
  Serious: No
  Sender: FDA-Public Use
  Company Number: US-GILEAD-2014-0097619

PATIENT
  Age: 60 Year
  Sex: Male
  Weight: 86.62 kg

DRUGS (5)
  1. SOVALDI [Suspect]
     Indication: CHRONIC HEPATITIS C
     Dosage: 400 MG, QD
     Route: 048
     Dates: start: 201401
  2. RIBAVIRIN [Concomitant]
     Indication: CHRONIC HEPATITIS C
     Dosage: 600 MG, BID
     Route: 048
     Dates: start: 201401
  3. PEGINTERFERON ALFA [Concomitant]
     Indication: CHRONIC HEPATITIS C
     Dosage: 180 ?G, Q1WK
     Route: 058
     Dates: start: 201401
  4. METOPROLOL [Concomitant]
     Dosage: 25 MG, QD
     Route: 048
  5. MULTIVITAMIN                       /07504101/ [Concomitant]
     Dosage: 1 TABLET (DF), QD
     Route: 048

REACTIONS (2)
  - Erectile dysfunction [Unknown]
  - White blood cell count decreased [Not Recovered/Not Resolved]
